FAERS Safety Report 8030869-3 (Version None)
Quarter: 2012Q1

REPORT INFORMATION
  Report Type: 
  Country: None (occurrence: None)
  Receive Date: 20120109
  Receipt Date: 20120104
  Transmission Date: 20120608
  Serious: Yes (Other)
  Sender: FDA-Public Use
  Company Number: US-PFIZER INC-2011315337

PATIENT
  Age: 75 Year
  Sex: Female
  Weight: 83.9 kg

DRUGS (4)
  1. LEVOTHYROXINE [Concomitant]
     Indication: HYPOTHYROIDISM
     Dosage: UNK
  2. TYGACIL [Suspect]
     Indication: MULTIPLE-DRUG RESISTANCE
     Dosage: 50 MG, 2X/DAY
     Route: 042
     Dates: start: 20111218
  3. TYGACIL [Suspect]
     Indication: OSTEOMYELITIS
  4. PANTOPRAZOLE [Concomitant]
     Indication: ULCER
     Dosage: UNK

REACTIONS (2)
  - CLOSTRIDIAL INFECTION [None]
  - RENAL FAILURE [None]
